FAERS Safety Report 12165317 (Version 2)
Quarter: 2016Q2

REPORT INFORMATION
  Report Type: Report from Study
  Country: LB (occurrence: LB)
  Receive Date: 20160309
  Receipt Date: 20160407
  Transmission Date: 20160815
  Serious: Yes (Hospitalization)
  Sender: FDA-Public Use
  Company Number: LB-ABBVIE-16K-093-1574758-00

PATIENT
  Age: 59 Year
  Sex: Female
  Weight: 83 kg

DRUGS (3)
  1. ASPICOT [Concomitant]
     Active Substance: ASPIRIN
     Indication: ANTICOAGULANT THERAPY
     Route: 048
     Dates: start: 20160228
  2. HUMIRA [Suspect]
     Active Substance: ADALIMUMAB
     Indication: RHEUMATOID ARTHRITIS
     Route: 058
     Dates: start: 200711
  3. VESSEL DUE F [Concomitant]
     Active Substance: SULODEXIDE
     Indication: PERIPHERAL VASCULAR DISORDER
     Route: 048
     Dates: start: 20160228

REACTIONS (4)
  - Peripheral vascular disorder [Recovered/Resolved]
  - Influenza [Unknown]
  - Cyanosis [Recovered/Resolved]
  - Oedema peripheral [Recovered/Resolved]

NARRATIVE: CASE EVENT DATE: 201601
